FAERS Safety Report 8478860-7 (Version None)
Quarter: 2012Q2

REPORT INFORMATION
  Report Type: 
  Country: None (occurrence: None)
  Receive Date: 20120629
  Receipt Date: 20120622
  Transmission Date: 20120825
  Serious: Yes (Other)
  Sender: FDA-Public Use
  Company Number: AT-PFIZER INC-2012150455

PATIENT
  Age: 53 Year
  Sex: Female
  Weight: 50 kg

DRUGS (2)
  1. THIAMAZOLE [Concomitant]
     Dosage: 10 UG, 2X/WEEK
  2. CLINDAMYCIN HCL [Suspect]
     Indication: VAGINAL INFECTION
     Dosage: 1X/DAY
     Dates: start: 20111225, end: 20111227

REACTIONS (1)
  - HYPERTHYROIDISM [None]
